FAERS Safety Report 9325789 (Version 2)
Quarter: 2013Q3

REPORT INFORMATION
  Report Type: Report from Study
  Country: AU (occurrence: AU)
  Receive Date: 20130604
  Receipt Date: 20130807
  Transmission Date: 20140515
  Serious: Yes (Hospitalization, Other)
  Sender: FDA-Public Use
  Company Number: AU-ELI_LILLY_AND_COMPANY-AU201305006467

PATIENT
  Age: 87 Year
  Sex: Female

DRUGS (2)
  1. TERIPARATIDE [Suspect]
     Indication: OSTEOPOROSIS
     Dosage: UNK, QD
     Dates: start: 20130518
  2. OLMETEC [Concomitant]
     Dosage: UNK

REACTIONS (11)
  - Loss of consciousness [Recovering/Resolving]
  - Blood pressure inadequately controlled [Recovered/Resolved]
  - Pyrexia [Recovered/Resolved]
  - Pain in extremity [Recovered/Resolved]
  - Breast pain [Recovered/Resolved]
  - Blood sodium decreased [Recovering/Resolving]
  - Blood potassium increased [Recovering/Resolving]
  - Pruritus [Not Recovered/Not Resolved]
  - Visual impairment [Not Recovered/Not Resolved]
  - Fatigue [Not Recovered/Not Resolved]
  - Gait disturbance [Not Recovered/Not Resolved]
